FAERS Safety Report 8532718-3 (Version None)
Quarter: 2012Q3

REPORT INFORMATION
  Report Type: 
  Country: None (occurrence: None)
  Receive Date: 20120724
  Receipt Date: 20120717
  Transmission Date: 20120928
  Serious: Yes (Hospitalization, Other)
  Sender: FDA-Public Use
  Company Number: PHHY2012MX062788

PATIENT
  Sex: Female

DRUGS (3)
  1. METFORMIN HYDROCHLORIDE [Concomitant]
     Dosage: UNK UKN, UNK
  2. ZOLEDRONOC ACID [Suspect]
     Indication: OSTEOPOROSIS
     Dosage: 5 MG/100 ML, EACH YEAR
     Route: 042
     Dates: start: 20110803
  3. INSULIN [Concomitant]
     Dosage: UNK UKN, UNK

REACTIONS (2)
  - DIABETIC COMPLICATION [None]
  - LOCALISED INFECTION [None]
